FAERS Safety Report 17368253 (Version 1)
Quarter: 2020Q1

REPORT INFORMATION
  Report Type: Report from Study
  Country: CO (occurrence: CO)
  Receive Date: 20200204
  Receipt Date: 20200204
  Transmission Date: 20200409
  Serious: Yes (Other)
  Sender: FDA-Public Use
  Company Number: CO-JNJFOC-20190728894

PATIENT
  Sex: Female
  Weight: 73 kg

DRUGS (1)
  1. SIMPONI [Suspect]
     Active Substance: GOLIMUMAB
     Indication: RHEUMATOID ARTHRITIS
     Route: 058
     Dates: start: 20181129, end: 20191127

REACTIONS (9)
  - Application site infection [Recovering/Resolving]
  - Inappropriate schedule of product administration [Unknown]
  - Postoperative wound infection [Recovering/Resolving]
  - Off label use [Unknown]
  - Hernia [Recovering/Resolving]
  - Product administration error [Unknown]
  - Drug ineffective [Unknown]
  - Urethral perforation [Unknown]
  - Pain [Not Recovered/Not Resolved]

NARRATIVE: CASE EVENT DATE: 2018
